FAERS Safety Report 12517043 (Version 2)
Quarter: 2016Q3

REPORT INFORMATION
  Report Type: Report from Study
  Country: US (occurrence: US)
  Receive Date: 20160630
  Receipt Date: 20160712
  Transmission Date: 20161109
  Serious: Yes (Hospitalization)
  Sender: FDA-Public Use
  Company Number: US-ACTELION-A-US2016-138448

PATIENT
  Age: 10 Month
  Sex: Male

DRUGS (16)
  1. SILDENAFIL. [Concomitant]
     Active Substance: SILDENAFIL
     Dosage: 15 MG, TID THROUGH GASTRIC FEEDING TUBE
  2. BUMETANIDE. [Concomitant]
     Active Substance: BUMETANIDE
     Dosage: 1MG AT 9AM, 0.5MG AT 4 PM, 1MG AT 9PM
  3. CHOLECALCIFEROL [Concomitant]
     Active Substance: CHOLECALCIFEROL
     Dosage: 1000 IU, QD THROUGH G-TUBE
  4. FERROUS SULFATE. [Concomitant]
     Active Substance: FERROUS SULFATE
     Dosage: 22 MG, BID THROUGH G-TUBE
  5. RANITIDINE. [Concomitant]
     Active Substance: RANITIDINE
     Dosage: 30 MG, BID THROUGH G-TUBE
  6. SPIRONOLACTONE. [Concomitant]
     Active Substance: SPIRONOLACTONE
     Dosage: 12 MG, Q12HRS, THROUGH G-TUBE
  7. ASPIRIN. [Concomitant]
     Active Substance: ASPIRIN
     Dosage: 0.25 TABLET, THROUGH G-TUBE
  8. OMEPRAZOLE. [Concomitant]
     Active Substance: OMEPRAZOLE
     Dosage: 2.5 ML, QD
     Route: 048
  9. BACTRIM [Concomitant]
     Active Substance: SULFAMETHOXAZOLE\TRIMETHOPRIM
     Dosage: 5 ML, THREE TIMES A WEEK IN AM
     Route: 048
  10. DIGOXIN. [Concomitant]
     Active Substance: DIGOXIN
     Dosage: 15 MCG, BID THROUGH G-TUBE
  11. TRACLEER [Suspect]
     Active Substance: BOSENTAN
     Indication: PULMONARY HYPERTENSION
     Dosage: 15.625 MG, QD VIA G-TUBE BID
     Route: 048
     Dates: start: 20160219
  12. CHILDRENS TYLENOL [Concomitant]
     Active Substance: ACETAMINOPHEN
     Indication: PAIN
     Dosage: 2.5 ML, Q6HRS PRN
     Route: 048
  13. CAPTOPRIL. [Concomitant]
     Active Substance: CAPTOPRIL
     Dosage: 2 MG, Q8HRS THROUGH G-TUBE
  14. ENOXAPARIN [Concomitant]
     Active Substance: ENOXAPARIN
     Dosage: 11 MG, Q12HRS
     Route: 058
  15. SIROLIMUS. [Concomitant]
     Active Substance: SIROLIMUS
     Dosage: 0.1 MG, QD THROUGH G-TUBE
  16. SODIUM CHLORIDE. [Concomitant]
     Active Substance: SODIUM CHLORIDE
     Dosage: 8 MEQ, TID, THROUGH G-TUBE

REACTIONS (2)
  - Vasodilation procedure [Unknown]
  - Cardiac failure [Unknown]
